FAERS Safety Report 9798983 (Version 1)
Quarter: 2014Q1

REPORT INFORMATION
  Report Type: Spontaneous
  Country: TR (occurrence: TR)
  Receive Date: 20140106
  Receipt Date: 20140106
  Transmission Date: 20141002
  Serious: Yes (Death)
  Sender: FDA-Public Use
  Company Number: TR-BAYER-2013-158775

PATIENT
  Sex: Male
  Weight: 80 kg

DRUGS (4)
  1. ASPIRIN [Suspect]
     Indication: CORONARY ARTERY DISEASE
     Dosage: UNK
  2. ECOPIRIN [Suspect]
     Dosage: 100 MG, QD
  3. DIGOXIN [Suspect]
     Dosage: 0.5 MG, QD
  4. BELOC [Suspect]
     Dosage: 25 MG, QD

REACTIONS (1)
  - Death [Fatal]
